FAERS Safety Report 15534231 (Version 1)
Quarter: 2018Q4

REPORT INFORMATION
  Report Type: Spontaneous
  Country: US (occurrence: US)
  Receive Date: 20181019
  Receipt Date: 20181019
  Transmission Date: 20190205
  Serious: No
  Sender: FDA-Public Use
  Company Number: None

PATIENT
  Age: 32 Year
  Sex: Female
  Weight: 54 kg

DRUGS (1)
  1. GYNOL II EXTRA STRENGTH [Suspect]
     Active Substance: NONOXYNOL-9
     Indication: CONTRACEPTION
     Route: 067
     Dates: start: 20180520, end: 20180919

REACTIONS (3)
  - Expired product administered [None]
  - Vulvovaginal discomfort [None]
  - Application site irritation [None]

NARRATIVE: CASE EVENT DATE: 20180901
